FAERS Safety Report 5283484-9 (Version None)
Quarter: 2007Q1

REPORT INFORMATION
  Report Type: 
  Country: None (occurrence: None)
  Receive Date: 20061226
  Receipt Date: 20061114
  Transmission Date: 20070707
  Serious: No
  Sender: FDA-Public Use
  Company Number: 2006PV025201

PATIENT
  Age: 53 Year
  Sex: Female

DRUGS (4)
  1. SYMLIN [Suspect]
     Dosage: SEE IMAGE
     Route: 058
     Dates: start: 20060101, end: 20060101
  2. SYMLIN [Suspect]
     Dosage: SEE IMAGE
     Route: 058
     Dates: start: 20060101, end: 20060101
  3. SYMLIN [Suspect]
     Dosage: SEE IMAGE
     Route: 058
     Dates: start: 20060601, end: 20060101
  4. SYMLIN [Suspect]
     Dosage: SEE IMAGE
     Route: 058
     Dates: start: 20060701, end: 20060701

REACTIONS (2)
  - COLITIS MICROSCOPIC [None]
  - DIARRHOEA [None]
